FAERS Safety Report 14087553 (Version 2)
Quarter: 2017Q4

REPORT INFORMATION
  Report Type: Spontaneous
  Country: IT (occurrence: IT)
  Receive Date: 20171013
  Receipt Date: 20171023
  Transmission Date: 20180321
  Serious: Yes (Other)
  Sender: FDA-Public Use
  Company Number: IT-JNJFOC-20171010692

PATIENT
  Age: 66 Year
  Sex: Male
  Weight: 82 kg

DRUGS (1)
  1. IBRUTINIB [Suspect]
     Active Substance: IBRUTINIB
     Indication: CHRONIC LYMPHOCYTIC LEUKAEMIA
     Route: 048
     Dates: start: 20161125

REACTIONS (2)
  - Hepatitis B core antibody positive [Unknown]
  - Transaminases increased [Unknown]

NARRATIVE: CASE EVENT DATE: 20171006
